FAERS Safety Report 24379920 (Version 2)
Quarter: 2024Q4

REPORT INFORMATION
  Report Type: Report from Study
  Country: US (occurrence: US)
  Receive Date: 20240930
  Receipt Date: 20241002
  Transmission Date: 20250114
  Serious: Yes (Death, Other)
  Sender: AMGEN
  Company Number: US-AMGEN-USASP2024192031

PATIENT
  Age: 66 Year
  Sex: Male

DRUGS (2)
  1. KRYSTEXXA [Suspect]
     Active Substance: PEGLOTICASE
     Indication: Gouty tophus
     Dosage: 8 MILLIGRAM, Q2WK, EVERY 2 WEEKS
     Route: 042
     Dates: start: 20240613
  2. KRYSTEXXA [Suspect]
     Active Substance: PEGLOTICASE
     Dosage: 8 MILLIGRAM, Q2WK, EVERY 2 WEEKS, EIGHTH INFUSION
     Route: 042
     Dates: start: 20240912, end: 20240912

REACTIONS (8)
  - Cardiac disorder [Fatal]
  - Ankle operation [Unknown]
  - Gait inability [Unknown]
  - Back pain [Unknown]
  - Post procedural swelling [Unknown]
  - Procedural pain [Unknown]
  - Procedural complication [Unknown]
  - Arthralgia [Unknown]

NARRATIVE: CASE EVENT DATE: 20240101
